FAERS Safety Report 8351106-6 (Version None)
Quarter: 2012Q2

REPORT INFORMATION
  Report Type: 
  Country: None (occurrence: None)
  Receive Date: 20120510
  Receipt Date: 20120503
  Transmission Date: 20120825
  Serious: No
  Sender: FDA-Public Use
  Company Number: US-B.I. PHARMACEUTICALS,INC./RIDGEFIELD-2012-BP-10132BP

PATIENT
  Age: 49 Year
  Sex: Female

DRUGS (1)
  1. MOBIC [Suspect]

REACTIONS (1)
  - MALAISE [None]
